FAERS Safety Report 17386561 (Version 1)
Quarter: 2020Q1

REPORT INFORMATION
  Report Type: Spontaneous
  Country: US (occurrence: US)
  Receive Date: 20200206
  Receipt Date: 20200206
  Transmission Date: 20200409
  Serious: No
  Sender: FDA-Public Use
  Company Number: US-BIOGEN-2020BI00835052

PATIENT
  Sex: Female

DRUGS (1)
  1. TYSABRI [Suspect]
     Active Substance: NATALIZUMAB
     Indication: MULTIPLE SCLEROSIS
     Route: 065
     Dates: start: 20191007, end: 20191202

REACTIONS (9)
  - Gait disturbance [Recovered/Resolved]
  - Muscle fatigue [Recovered/Resolved]
  - Pain in extremity [Recovered/Resolved]
  - Balance disorder [Not Recovered/Not Resolved]
  - Fall [Recovered/Resolved]
  - Limb discomfort [Recovered/Resolved]
  - Chest pain [Recovered/Resolved]
  - Oral herpes [Recovered/Resolved]
  - Swelling face [Recovered/Resolved]
